FAERS Safety Report 10155545 (Version 1)
Quarter: 2014Q2

REPORT INFORMATION
  Report Type: Spontaneous
  Country: FR (occurrence: FR)
  Receive Date: 20140506
  Receipt Date: 20140506
  Transmission Date: 20141212
  Serious: Yes (Death, Life-Threatening, Hospitalization, Other)
  Sender: FDA-Public Use
  Company Number: FR-BRISTOL-MYERS SQUIBB COMPANY-20671673

PATIENT
  Age: 79 Year
  Sex: Female

DRUGS (6)
  1. COUMADINE [Suspect]
     Route: 048
  2. INEXIUM [Suspect]
     Route: 048
  3. LASILIX [Suspect]
     Route: 048
  4. CARDENSIEL [Suspect]
     Route: 048
  5. FLAGYL [Suspect]
     Route: 048
     Dates: start: 20131214, end: 20131217
  6. ROCEPHINE [Suspect]
     Route: 048
     Dates: start: 20131214, end: 20131217

REACTIONS (5)
  - Toxic skin eruption [Fatal]
  - Pruritus [Fatal]
  - Eosinophilia [Fatal]
  - Renal failure [Fatal]
  - International normalised ratio increased [Unknown]
